FAERS Safety Report 9053702 (Version 2)
Quarter: 2013Q1

REPORT INFORMATION
  Report Type: Spontaneous
  Country: US (occurrence: None)
  Receive Date: 20130117
  Receipt Date: 20130128
  Transmission Date: 20140127
  Serious: Yes (Hospitalization)
  Sender: FDA-Public Use
  Company Number: 2013-0039

PATIENT
  Age: 67 Year
  Sex: Male

DRUGS (3)
  1. KYPROLIS (CARFILZOMIB) [Suspect]
     Indication: PLASMA CELL MYELOMA
     Dosage: INTRAVENOUS (45 MG, 2 IN 1 WK)
     Route: 042
     Dates: start: 20121008
  2. COUMADIN (WARFARIN SODIUM) (WARFARIN SODIUM) [Concomitant]
  3. THALIDOMIDE (THALIDOMIDE) (THALIDOMIDE) [Concomitant]

REACTIONS (5)
  - Cellulitis [None]
  - Platelet count decreased [None]
  - Tremor [None]
  - Staphylococcal infection [None]
  - Abscess limb [None]
